FAERS Safety Report 6200598-7 (Version None)
Quarter: 2009Q2

REPORT INFORMATION
  Report Type: 
  Country: None (occurrence: None)
  Receive Date: 20090522
  Receipt Date: 20090512
  Transmission Date: 20091009
  Serious: Yes (Hospitalization, Other)
  Sender: FDA-Public Use
  Company Number: US-AMGEN-QUU346894

PATIENT
  Sex: Female
  Weight: 2.36 kg

DRUGS (7)
  1. ENBREL [Suspect]
     Indication: PSORIATIC ARTHROPATHY
     Route: 064
     Dates: start: 20061201, end: 20070301
  2. ENBREL [Suspect]
     Indication: RHEUMATOID ARTHRITIS
  3. ENBREL [Suspect]
     Indication: PSORIASIS
  4. SYNTHROID [Concomitant]
     Route: 064
     Dates: end: 20070301
  5. ARIXTRA [Concomitant]
     Route: 064
  6. COUMADIN [Concomitant]
     Route: 064
  7. LOVENOX [Concomitant]
     Route: 064

REACTIONS (5)
  - ASTHMA [None]
  - FOETAL DISTRESS SYNDROME [None]
  - HYPOGLYCAEMIA NEONATAL [None]
  - JAUNDICE NEONATAL [None]
  - PREMATURE BABY [None]
